FAERS Safety Report 7383288-7 (Version None)
Quarter: 2011Q1

REPORT INFORMATION
  Report Type: 
  Country: None (occurrence: None)
  Receive Date: 20110330
  Receipt Date: 20110316
  Transmission Date: 20110831
  Serious: Yes (Other)
  Sender: FDA-Public Use
  Company Number: GB-SANOFI-AVENTIS-2011SA008898

PATIENT
  Sex: Male

DRUGS (5)
  1. MULTAQ [Suspect]
     Route: 048
     Dates: start: 20100901
  2. SIMVASTATIN [Concomitant]
  3. SIMVASTATIN [Concomitant]
  4. SLOZEM [Concomitant]
  5. CANDESARTAN [Concomitant]

REACTIONS (2)
  - ATRIAL FIBRILLATION [None]
  - ALANINE AMINOTRANSFERASE INCREASED [None]
